FAERS Safety Report 10262674 (Version 2)
Quarter: 2014Q2

REPORT INFORMATION
  Report Type: Report from Study
  Country: US (occurrence: US)
  Receive Date: 20140626
  Receipt Date: 20140626
  Transmission Date: 20141212
  Serious: Yes (Other)
  Sender: FDA-Public Use
  Company Number: US-MYLANLABS-2013S1011167

PATIENT
  Age: 42 Year
  Sex: Male

DRUGS (4)
  1. CLOZAPINE TABLETS [Suspect]
  2. CLOZAPINE TABLETS [Suspect]
  3. CLOZAPINE TABLETS [Suspect]
     Dosage: 100 MG QHS AND 200 MG QAM (TOTAL DOSE 300MG DAILY)
     Dates: end: 201308
  4. CLOZAPINE TABLETS [Suspect]
     Dosage: 100 MG QHS AND 200 MG QAM (TOTAL DOSE 300MG DAILY)
     Dates: end: 201308

REACTIONS (1)
  - Granulocytopenia [Not Recovered/Not Resolved]
